FAERS Safety Report 14667083 (Version 1)
Quarter: 2018Q1

REPORT INFORMATION
  Report Type: Spontaneous
  Country: ES (occurrence: ES)
  Receive Date: 20180322
  Receipt Date: 20180322
  Transmission Date: 20180509
  Serious: Yes (Hospitalization, Other)
  Sender: FDA-Public Use
  Company Number: ES-AXELLIA-001472

PATIENT
  Age: 55 Year
  Sex: Female

DRUGS (8)
  1. DEXKETOPROFEN/DEXKETOPROFEN TROMETAMOL [Concomitant]
     Indication: PAIN
  2. PANTOPRAZOLE [Concomitant]
     Active Substance: PANTOPRAZOLE
  3. PARACETAMOL [Concomitant]
     Active Substance: ACETAMINOPHEN
  4. VANCOMYCIN [Suspect]
     Active Substance: VANCOMYCIN
     Indication: STAPHYLOCOCCAL INFECTION
  5. LORAZEPAM. [Concomitant]
     Active Substance: LORAZEPAM
  6. PETHIDINE [Concomitant]
     Active Substance: MEPERIDINE
  7. OLMESARTAN/OLMESARTAN MEDOXOMIL [Concomitant]
  8. CIPROFLOXACIN. [Concomitant]
     Active Substance: CIPROFLOXACIN

REACTIONS (1)
  - Pancytopenia [Recovered/Resolved]
